FAERS Safety Report 4803312-2 (Version None)
Quarter: 2005Q4

REPORT INFORMATION
  Report Type: 
  Country: None (occurrence: None)
  Receive Date: 20051013
  Receipt Date: 20050912
  Transmission Date: 20060501
  Serious: Yes (Other)
  Sender: FDA-Public Use
  Company Number: TRP_0128_2005

PATIENT
  Age: 57 Year
  Sex: Male

DRUGS (12)
  1. RIBASPHERE [Suspect]
     Indication: HEPATITIS C
     Dosage: DF, PO
     Route: 048
     Dates: start: 20041114
  2. PEG-INTRON/PEGINTERFERON ALFA-2B/SCHERING -PLOUGH/REDIPEN [Suspect]
     Indication: HEPATITIS C
     Dosage: DF, SC
     Route: 058
     Dates: start: 20041114
  3. ASPIRIN [Concomitant]
  4. ATENOLOL [Concomitant]
  5. BUSPAR [Concomitant]
  6. CRESTOR [Concomitant]
  7. GLUCOPHAGE [Concomitant]
  8. GLUCOTROL XL [Concomitant]
  9. HYDROCHLOROTHIAZIDE [Concomitant]
  10. MONOPRIL [Concomitant]
  11. NEXIUM [Concomitant]
  12. NITRO [Concomitant]

REACTIONS (1)
  - BLOOD GLUCOSE INCREASED [None]
